FAERS Safety Report 7910163-9 (Version None)
Quarter: 2011Q4

REPORT INFORMATION
  Report Type: 
  Country: None (occurrence: None)
  Receive Date: 20111111
  Receipt Date: 20111025
  Transmission Date: 20120403
  Serious: Yes (Life-Threatening, Hospitalization, Disabling)
  Sender: FDA-Public Use
  Company Number: JP-ROCHE-GNE258195

PATIENT
  Age: 78 Year
  Sex: Female

DRUGS (14)
  1. ALTEPLASE [Suspect]
     Indication: EMBOLIC STROKE
     Dosage: 0.6 MG/KG, UNK
     Route: 042
     Dates: start: 20070418
  2. RADICUT [Concomitant]
     Indication: PRODUCT USED FOR UNKNOWN INDICATION
     Dosage: 60 MG, UNK
     Route: 041
     Dates: start: 20070418, end: 20070501
  3. CANDESARTAN CILEXETIL [Concomitant]
     Indication: PRODUCT USED FOR UNKNOWN INDICATION
     Dosage: 8 DF, UNK
     Route: 048
     Dates: start: 20070419
  4. ADONA [Concomitant]
     Indication: PRODUCT USED FOR UNKNOWN INDICATION
     Dosage: 150 MG, UNK
     Route: 041
     Dates: start: 20070419, end: 20070420
  5. NOVOLIN R [Concomitant]
     Indication: PRODUCT USED FOR UNKNOWN INDICATION
     Dosage: 8 IU, UNK
     Route: 051
     Dates: start: 20070419
  6. RADICUT [Concomitant]
     Route: 041
     Dates: start: 20110720, end: 20110802
  7. GLYCEOL [Concomitant]
     Indication: PRODUCT USED FOR UNKNOWN INDICATION
     Dosage: 600 ML, UNK
     Route: 041
     Dates: start: 20070419, end: 20070423
  8. VASODILATOR [Concomitant]
     Indication: PRODUCT USED FOR UNKNOWN INDICATION
  9. TRANEXAMIC ACID [Concomitant]
     Indication: PRODUCT USED FOR UNKNOWN INDICATION
     Dosage: 3 G, UNK
     Route: 041
     Dates: start: 20070419, end: 20070420
  10. SANDONORM [Concomitant]
     Indication: PRODUCT USED FOR UNKNOWN INDICATION
     Dosage: 2 DF, UNK
     Route: 048
     Dates: start: 20070420
  11. INSULIN [Concomitant]
     Indication: PRODUCT USED FOR UNKNOWN INDICATION
     Route: 051
  12. ALTEPLASE [Suspect]
     Dates: start: 20110720, end: 20110720
  13. ATELEC [Concomitant]
     Indication: PRODUCT USED FOR UNKNOWN INDICATION
     Dosage: 10 DF, UNK
     Route: 048
     Dates: start: 20070419
  14. INDAPAMIDE [Concomitant]
     Indication: PRODUCT USED FOR UNKNOWN INDICATION
     Dosage: 1 DF, UNK
     Route: 048
     Dates: start: 20070419

REACTIONS (2)
  - HYDROCEPHALUS [None]
  - HAEMORRHAGIC CEREBRAL INFARCTION [None]
